FAERS Safety Report 22170145 (Version 2)
Quarter: 2023Q2

REPORT INFORMATION
  Report Type: Other
  Country: GB (occurrence: GB)
  Receive Date: 20230404
  Receipt Date: 20230412
  Transmission Date: 20230722
  Serious: Yes (Disabling)
  Sender: FDA-Public Use
  Company Number: None

PATIENT
  Age: 51 Year
  Sex: Female

DRUGS (21)
  1. MIRABEGRON [Suspect]
     Active Substance: MIRABEGRON
     Indication: Ill-defined disorder
     Dosage: UNK UNK, UNKNOWN FREQ.
     Route: 065
     Dates: start: 20230328
  2. MIRABEGRON [Concomitant]
     Active Substance: MIRABEGRON
     Indication: Ill-defined disorder
     Dosage: UNK UNK, ONCE DAILY(TAKE ONE DAILY)
     Route: 065
     Dates: start: 20230313
  3. QUETIAPINE [Concomitant]
     Active Substance: QUETIAPINE
     Indication: Ill-defined disorder
     Dosage: UNK UNK, (INCREASE DOSE BY 25MG EVERY WEEK TILL ON 100MG ...)
     Route: 065
     Dates: start: 20220808
  4. SOLIFENACIN [Concomitant]
     Active Substance: SOLIFENACIN
     Indication: Ill-defined disorder
     Dosage: 1 DF, TWICE DAILY (TAKE ONE TABLET TWICE A DAY)
     Route: 065
     Dates: start: 20220309, end: 20230313
  5. BETAMETHASONE VALERATE [Concomitant]
     Active Substance: BETAMETHASONE VALERATE
     Indication: Ill-defined disorder
     Dosage: UNK UNK, TWICE DAILY (MODERATE POTENCY STEROID CREAM - APPLY TWICE A DAY)
     Route: 065
     Dates: start: 20230104, end: 20230201
  6. COAL TAR\COCONUT OIL\SALICYLIC ACID [Concomitant]
     Active Substance: COAL TAR\COCONUT OIL\SALICYLIC ACID
     Indication: Ill-defined disorder
     Dosage: UNK UNK, AS NEEDED(USE AS A SHAMPOO, DAILY IF NECESSARY, UNTIL YOUR SCALP CONDITION GETS BETTER)
     Route: 065
     Dates: start: 20230110, end: 20230111
  7. CODEINE PHOSPHATE [Concomitant]
     Active Substance: CODEINE PHOSPHATE
     Indication: Ill-defined disorder
     Dosage: UNK UNK, 4 TIMES DAILY (TAKE ONE TO TWO TABLETS UP TO 4 TIMES/DAY)
     Route: 065
     Dates: start: 20220428, end: 20230222
  8. ERYTHROMYCIN [Concomitant]
     Active Substance: ERYTHROMYCIN
     Indication: Ill-defined disorder
     Dosage: 1 DF, 4 TIMES DAILY (TAKE ONE 4 TIMES/DAY FOR 5 DAYS)
     Route: 065
     Dates: start: 20230109, end: 20230114
  9. ESTRADIOL [Concomitant]
     Active Substance: ESTRADIOL
     Indication: Ill-defined disorder
     Dosage: 1 DF, TWICE WEEKLY (APPLY ONE PATCH TWICE A WEEK)
     Route: 065
     Dates: start: 20221017
  10. FLUOXETINE [Concomitant]
     Active Substance: FLUOXETINE HYDROCHLORIDE
     Indication: Ill-defined disorder
     Dosage: UNK UNK, THRICE DAILY(TAKE THREE DAILY (SEE LETTER 15-NOV-2018)
     Route: 065
     Dates: start: 20221024
  11. IVABRADINE [Concomitant]
     Active Substance: IVABRADINE
     Indication: Ill-defined disorder
     Dosage: UNK UNK, TWICE DAILY (TAKE ONE TWICE DAILY AS ADVISED BY CARDIOLOGIST)
     Route: 065
     Dates: start: 20221024
  12. NAPROXEN [Concomitant]
     Active Substance: NAPROXEN
     Indication: Ill-defined disorder
     Dosage: UNK UNK, TWICE DAILY (TAKE ONE TWICE DAILY)
     Route: 065
     Dates: start: 20221024
  13. NITROFURANTOIN [Concomitant]
     Active Substance: NITROFURANTOIN
     Indication: Ill-defined disorder
     Dosage: 1 DF, TWICE DAILY (TAKE ONE CAPSULE TWICE DAILY FOR 7 DAYS)
     Route: 065
     Dates: start: 20230327
  14. OMEPRAZOLE [Concomitant]
     Active Substance: OMEPRAZOLE
     Indication: Ill-defined disorder
     Dosage: 1 DF, ONCE DAILY (TAKE ONE CAPSULE ONCE DAILY)
     Route: 065
     Dates: start: 20220202
  15. ORLISTAT [Concomitant]
     Active Substance: ORLISTAT
     Indication: Ill-defined disorder
     Dosage: UNK UNK, THRICE DAILY(TAKE ONE, 3 TIMES/DAY, TO HELP WEIGHT-LOSS
     Route: 065
     Dates: start: 20221024
  16. OXYBUTYNIN [Concomitant]
     Active Substance: OXYBUTYNIN
     Indication: Ill-defined disorder
     Dosage: UNK UNK, TWICE DAILY(TAKE ONE TWICE A DAY)
     Route: 065
     Dates: start: 20220202, end: 20230222
  17. ALBUTEROL [Concomitant]
     Active Substance: ALBUTEROL
     Indication: Ill-defined disorder
     Dosage: 2 DF, AS NEEDED (INHALE 2 DOSES AS NEEDED FOR WHEEZE AND BREATHL_
     Route: 065
     Dates: start: 20221103
  18. SEVODYNE [Concomitant]
     Indication: Ill-defined disorder
     Dosage: UNK UNK, ONCE WEEKLY(APPLY ONE WEEKLY)
     Route: 065
     Dates: start: 20220812
  19. SYMBICORT [Concomitant]
     Active Substance: BUDESONIDE\FORMOTEROL FUMARATE DIHYDRATE
     Indication: Ill-defined disorder
     Dosage: UNK UNK, TWICE DAILY(1-2 PUFFS TWICE A DAY)
     Route: 065
     Dates: start: 20221103
  20. ZOLMITRIPTAN [Concomitant]
     Active Substance: ZOLMITRIPTAN
     Indication: Ill-defined disorder
     Dosage: 2.5 MG, OTHER (2.5 MG REPEATED AFTER NOT LESS THAN 2 HOURS)
     Route: 065
     Dates: start: 20220809
  21. ZOPICLONE [Concomitant]
     Active Substance: ZOPICLONE
     Indication: Ill-defined disorder
     Dosage: UNK UNK, OTHER (DO NOT TAKE FOR MORE THAN THREE CONSECUTIVE)
     Route: 065
     Dates: start: 20221116

REACTIONS (2)
  - Contusion [Recovering/Resolving]
  - Pruritus [Recovering/Resolving]

NARRATIVE: CASE EVENT DATE: 20230328
